FAERS Safety Report 8896366 (Version 1)
Quarter: 2012Q4

REPORT INFORMATION
  Report Type: Spontaneous
  Country: US (occurrence: None)
  Receive Date: 20121102
  Receipt Date: 20121102
  Transmission Date: 20130627
  Serious: Yes (Other)
  Sender: FDA-Public Use
  Company Number: 1469147

PATIENT
  Age: 31 Year
  Sex: Female

DRUGS (2)
  1. METHYL PREDNISOLONE [Suspect]
     Dosage: Not Reported, UNKNOWN, Intravenous (not
  2. ANTIBIOTIC [Concomitant]

REACTIONS (3)
  - Gastrointestinal candidiasis [None]
  - Gastrointestinal haemorrhage [None]
  - Anaemia [None]
